FAERS Safety Report 20609923 (Version 1)
Quarter: 2022Q1

REPORT INFORMATION
  Report Type: Spontaneous
  Country: FR (occurrence: FR)
  Receive Date: 20220318
  Receipt Date: 20220318
  Transmission Date: 20220424
  Serious: Yes (Hospitalization, Congenital Anomaly)
  Sender: FDA-Public Use
  Company Number: FR-ABBVIE-22K-056-4319761-00

PATIENT
  Sex: Male
  Weight: 3.28 kg

DRUGS (2)
  1. VALPROATE SODIUM [Suspect]
     Active Substance: VALPROATE SODIUM
     Indication: Maternal exposure timing unspecified
     Route: 064
     Dates: start: 20060209
  2. VALPROATE SODIUM [Suspect]
     Active Substance: VALPROATE SODIUM
     Route: 064
     Dates: start: 20061106

REACTIONS (23)
  - Rhinitis [Unknown]
  - Asthma [Unknown]
  - Dyslexia [Unknown]
  - Disturbance in attention [Unknown]
  - Developmental delay [Unknown]
  - Psychomotor retardation [Unknown]
  - Fine motor delay [Unknown]
  - Dysgraphia [Unknown]
  - Scoliosis [Unknown]
  - Speech disorder [Unknown]
  - Reading disorder [Unknown]
  - Language disorder [Unknown]
  - Learning disorder [Unknown]
  - Psychiatric symptom [Unknown]
  - Memory impairment [Unknown]
  - Dysmorphism [Unknown]
  - Nasopharyngitis [Unknown]
  - Anxiety [Unknown]
  - Ear infection [Unknown]
  - Fatigue [Unknown]
  - Visual impairment [Unknown]
  - Bronchitis [Unknown]
  - Foetal exposure during pregnancy [Unknown]
